FAERS Safety Report 6767220-2 (Version None)
Quarter: 2010Q2

REPORT INFORMATION
  Report Type: 
  Country: None (occurrence: None)
  Receive Date: 20100614
  Receipt Date: 20100502
  Transmission Date: 20101027
  Serious: No
  Sender: FDA-Public Use
  Company Number: US-BAYER-201021445NA

PATIENT
  Sex: Female

DRUGS (1)
  1. BETASERON [Suspect]
     Indication: DRUG USE FOR UNKNOWN INDICATION
     Dosage: AUTOINJECTOR
     Route: 058
     Dates: start: 20070101

REACTIONS (3)
  - CONTUSION [None]
  - RASH MACULAR [None]
  - SCAR [None]
